FAERS Safety Report 9123948 (Version 1)
Quarter: 2013Q1

REPORT INFORMATION
  Report Type: Spontaneous
  Country: US (occurrence: US)
  Receive Date: 20130116
  Receipt Date: 20130116
  Transmission Date: 20140127
  Serious: No
  Sender: FDA-Public Use
  Company Number: US-PFIZER INC-2013014131

PATIENT
  Age: 80 Year
  Sex: Female
  Weight: 53.52 kg

DRUGS (1)
  1. AMLODIPINE BESILATE [Suspect]
     Dosage: UNK
     Dates: start: 2011, end: 201208

REACTIONS (1)
  - Muscle spasms [Unknown]
